FAERS Safety Report 12418722 (Version 1)
Quarter: 2016Q2

REPORT INFORMATION
  Report Type: Spontaneous
  Country: US (occurrence: None)
  Receive Date: 20160527
  Receipt Date: 20160527
  Transmission Date: 20160815
  Serious: No
  Sender: FDA-Public Use
  Company Number: None

PATIENT
  Age: 28 Year
  Sex: Female
  Weight: 77.57 kg

DRUGS (5)
  1. ABILIFY [Suspect]
     Active Substance: ARIPIPRAZOLE
     Indication: IMPULSE-CONTROL DISORDER
     Route: 048
     Dates: start: 20160408, end: 20160526
  2. PROZAC [Concomitant]
     Active Substance: FLUOXETINE HYDROCHLORIDE
  3. TOPAMAX [Concomitant]
     Active Substance: TOPIRAMATE
  4. ATIVAN [Concomitant]
     Active Substance: LORAZEPAM
  5. ROZEREM [Concomitant]
     Active Substance: RAMELTEON

REACTIONS (2)
  - Sexually inappropriate behaviour [None]
  - Impulsive behaviour [None]

NARRATIVE: CASE EVENT DATE: 20160423
